FAERS Safety Report 5876668-X (Version None)
Quarter: 2008Q3

REPORT INFORMATION
  Report Type: 
  Country: None (occurrence: None)
  Receive Date: 20080909
  Receipt Date: 20080909
  Transmission Date: 20090109
  Serious: Yes (Life-Threatening, Hospitalization, Other)
  Sender: FDA-Public Use
  Company Number: None

PATIENT
  Sex: Female
  Weight: 62.4 kg

DRUGS (1)
  1. MAGNESIUM SULFATE [Suspect]
     Indication: VENTRICULAR TACHYCARDIA
     Dosage: 2 GM IN 100ML SALINE ONCE IV
     Route: 042
     Dates: start: 20080903

REACTIONS (4)
  - BRADYARRHYTHMIA [None]
  - CARDIAC ARREST [None]
  - INCORRECT DOSE ADMINISTERED [None]
  - MEDICATION ERROR [None]
